FAERS Safety Report 5625105-9 (Version None)
Quarter: 2008Q1

REPORT INFORMATION
  Report Type: 
  Country: None (occurrence: None)
  Receive Date: 20080213
  Receipt Date: 20080118
  Transmission Date: 20080703
  Serious: No
  Sender: FDA-Public Use
  Company Number: US-BOEHRINGER INGELHEIM GMBH, GERMANY-2008-BP-00192BP

PATIENT
  Sex: Female

DRUGS (8)
  1. CATAPRES-TTS-1 [Suspect]
     Indication: HYPERTENSION
     Route: 061
     Dates: start: 20071101, end: 20071231
  2. BENICAR HCT [Concomitant]
  3. JANUVIA [Concomitant]
  4. GLUCOPHAGE [Concomitant]
  5. VASOTEC [Concomitant]
  6. TEMAZEPAM [Concomitant]
  7. METOPROLOL-XL [Concomitant]
  8. ZOCOR [Concomitant]

REACTIONS (2)
  - OEDEMA PERIPHERAL [None]
  - SOMNOLENCE [None]
